FAERS Safety Report 24578271 (Version 4)
Quarter: 2025Q4

REPORT INFORMATION
  Report Type: Spontaneous
  Country: EU (occurrence: EU)
  Receive Date: 20241105
  Receipt Date: 20251105
  Transmission Date: 20260117
  Serious: Yes (Other)
  Sender: AMGEN
  Company Number: EU-Vifor (International) Inc.-VIT-2024-09947

PATIENT
  Age: 29 Year
  Sex: Female
  Weight: 66 kg

DRUGS (27)
  1. TAVNEOS [Suspect]
     Active Substance: AVACOPAN
     Indication: Anti-neutrophil cytoplasmic antibody positive vasculitis
     Dosage: 30,MG,BID
     Route: 048
     Dates: start: 20240403, end: 20250401
  2. EPOETIN ALFA [Concomitant]
     Active Substance: ERYTHROPOIETIN
     Indication: Anti-neutrophil cytoplasmic antibody positive vasculitis
     Dosage: .3,ML,TID
     Route: 058
     Dates: start: 202404
  3. RITUXIMAB [Concomitant]
     Active Substance: RITUXIMAB
     Indication: Anti-neutrophil cytoplasmic antibody positive vasculitis
     Dosage: SINGLE INFUSION
     Route: 040
     Dates: start: 20240326, end: 20240326
  4. RITUXIMAB [Concomitant]
     Active Substance: RITUXIMAB
     Dosage: SINGLE INFUSION
     Route: 040
     Dates: start: 20240404, end: 20240404
  5. RITUXIMAB [Concomitant]
     Active Substance: RITUXIMAB
     Dosage: SINGLE INFUSION
     Route: 040
     Dates: start: 20240411, end: 20240411
  6. RITUXIMAB [Concomitant]
     Active Substance: RITUXIMAB
     Dosage: SINGLE INFUSION
     Route: 040
     Dates: start: 20240418, end: 20240418
  7. RITUXIMAB [Concomitant]
     Active Substance: RITUXIMAB
     Dosage: 500 MG, SINGLE
     Route: 040
     Dates: start: 20241002, end: 20241002
  8. RITUXIMAB [Concomitant]
     Active Substance: RITUXIMAB
     Dosage: 500 MG
     Route: 040
     Dates: start: 20250326, end: 20250326
  9. PREDNISOLONE [Concomitant]
     Active Substance: PREDNISOLONE
     Indication: Anti-neutrophil cytoplasmic antibody positive vasculitis
     Dosage: 250,MG,OD
     Route: 048
     Dates: start: 20240322, end: 20240325
  10. PREDNISOLONE [Concomitant]
     Active Substance: PREDNISOLONE
     Dosage: 60,MG,QD
     Route: 048
     Dates: start: 202404, end: 20240411
  11. PREDNISOLONE [Concomitant]
     Active Substance: PREDNISOLONE
     Dosage: 20,MG,QD
     Route: 048
     Dates: start: 20240411, end: 20240415
  12. PREDNISOLONE [Concomitant]
     Active Substance: PREDNISOLONE
     Dosage: 5,MG,QD
     Route: 048
     Dates: start: 20240415
  13. PREDNISOLONE [Concomitant]
     Active Substance: PREDNISOLONE
     Dosage: 60 MG, OD
     Route: 048
     Dates: start: 20240325, end: 20240405
  14. PREDNISOLONE [Concomitant]
     Active Substance: PREDNISOLONE
     Dosage: 40 MG, OD
     Route: 048
     Dates: start: 20240406, end: 20240409
  15. PREDNISOLONE [Concomitant]
     Active Substance: PREDNISOLONE
     Dosage: 20 MG, OD
     Route: 048
     Dates: start: 20240410, end: 20240414
  16. PANTOPRAZOLE [Concomitant]
     Active Substance: PANTOPRAZOLE
     Indication: Gastrointestinal disorder prophylaxis
     Dosage: 40,MG,QD
     Route: 048
     Dates: start: 202404, end: 202410
  17. COTRIMOXAZOLE [Concomitant]
     Active Substance: SULFAMETHOXAZOLE\TRIMETHOPRIM
     Indication: Anti-neutrophil cytoplasmic antibody positive vasculitis
     Dosage: 400/80
     Route: 048
     Dates: start: 20240322, end: 20250401
  18. SODIUM BICARBONATE [Concomitant]
     Active Substance: SODIUM BICARBONATE
     Indication: Anti-neutrophil cytoplasmic antibody positive vasculitis
     Dosage: 3/ DAY ON 2 DAYS/WEEK
     Route: 048
     Dates: start: 202404
  19. RAMIPRIL [Concomitant]
     Active Substance: RAMIPRIL
     Indication: Anti-neutrophil cytoplasmic antibody positive vasculitis
     Dosage: TWICE DAILY (MORNING: 5MG, AFTERNOON:2.5MG)
     Route: 048
     Dates: start: 202404
  20. AMLODIPINE [Concomitant]
     Active Substance: AMLODIPINE BESYLATE
     Indication: Anti-neutrophil cytoplasmic antibody positive vasculitis
     Dosage: 5,MG,BID
     Route: 048
     Dates: start: 202404
  21. TORSEMIDE [Concomitant]
     Active Substance: TORSEMIDE
     Indication: Anti-neutrophil cytoplasmic antibody positive vasculitis
     Dosage: 100,MG,QD
     Route: 048
     Dates: start: 202404
  22. CHOLECALCIFEROL [Concomitant]
     Active Substance: CHOLECALCIFEROL
     Indication: Anti-neutrophil cytoplasmic antibody positive vasculitis
     Dosage: 20 IE
     Route: 048
     Dates: start: 202404, end: 202406
  23. XIPAMIDE [Concomitant]
     Active Substance: XIPAMIDE
     Indication: Anti-neutrophil cytoplasmic antibody positive vasculitis
     Dosage: 10,MG,QD
     Route: 048
     Dates: start: 202407
  24. SEVELAMER CARBONATE [Concomitant]
     Active Substance: SEVELAMER CARBONATE
     Indication: Anti-neutrophil cytoplasmic antibody positive vasculitis
     Dosage: 800,MG,TID
     Route: 048
     Dates: start: 202407
  25. PREDNISONE [Concomitant]
     Active Substance: PREDNISONE
     Dosage: DOSE OF }60MG/DAY
     Route: 065
  26. FOLATE SODIUM [Concomitant]
     Active Substance: FOLATE SODIUM
     Indication: Anti-neutrophil cytoplasmic antibody positive vasculitis
     Dosage: 5 MG, OD
     Route: 048
     Dates: start: 202404, end: 202407
  27. FOLIC ACID [Concomitant]
     Active Substance: FOLIC ACID
     Dosage: 0.4 MG, OD
     Route: 048
     Dates: start: 20240723

REACTIONS (9)
  - Shunt occlusion [Recovered/Resolved]
  - Paraesthesia [Recovered/Resolved]
  - Arthralgia [Recovered/Resolved]
  - Dysgeusia [Recovered/Resolved]
  - Psoriasis [Recovered/Resolved]
  - Headache [Recovered/Resolved]
  - Nasopharyngitis [Recovered/Resolved]
  - Tooth discolouration [Recovered/Resolved]
  - Umbilical hernia [Not Recovered/Not Resolved]

NARRATIVE: CASE EVENT DATE: 20240101
